FAERS Safety Report 8884959 (Version 1)
Quarter: 2012Q4

REPORT INFORMATION
  Report Type: 
  Country: US (occurrence: US)
  Receive Date: 20121102
  Receipt Date: 20121102
  Transmission Date: 20130627
  Serious: No
  Sender: FDA-Public Use
  Company Number: US-BAYER-2012-114853

PATIENT
  Age: 85 Year
  Sex: Female
  Weight: 79.37 kg

DRUGS (10)
  1. ALEVE CAPLET/TABLET,MIDOL EXTENDED RELIEF CAPLET [Suspect]
     Dosage: 1 DF, QD
     Dates: start: 20121029, end: 20121029
  2. INSULIN [Concomitant]
  3. AMLODIPINE [Concomitant]
  4. DIOVAN HYDROCHLOROTHIAZIDE [Concomitant]
  5. HUMULIN [Concomitant]
  6. FUROSEMIDE [Concomitant]
  7. HYDROCODONE [Concomitant]
     Indication: ARTHRITIS
  8. XANAX [Concomitant]
  9. FLEXERIL [Concomitant]
  10. MULTIPLE VITAMINS [Concomitant]

REACTIONS (4)
  - Thermal burn [Not Recovered/Not Resolved]
  - Throat irritation [Not Recovered/Not Resolved]
  - Glossodynia [None]
  - Dyspepsia [Not Recovered/Not Resolved]
